FAERS Safety Report 6289881-7 (Version None)
Quarter: 2009Q3

REPORT INFORMATION
  Report Type: 
  Country: None (occurrence: None)
  Receive Date: 20090730
  Receipt Date: 20080904
  Transmission Date: 20100115
  Serious: No
  Sender: FDA-Public Use
  Company Number: US-BRISTOL-MYERS SQUIBB COMPANY-14324131

PATIENT
  Age: 90 Year
  Sex: Female

DRUGS (9)
  1. COUMADIN [Suspect]
  2. MACROBID [Suspect]
     Dates: start: 20080830
  3. TARKA [Concomitant]
  4. LASIX [Concomitant]
  5. ENABLEX [Concomitant]
  6. CALCIUM [Concomitant]
  7. MAGNESIUM [Concomitant]
  8. ZINC [Concomitant]
  9. QUININE [Concomitant]

REACTIONS (2)
  - MUSCULOSKELETAL PAIN [None]
  - PRURITUS [None]
